FAERS Safety Report 7759189-9 (Version None)
Quarter: 2011Q3

REPORT INFORMATION
  Report Type: 
  Country: None (occurrence: None)
  Receive Date: 20110919
  Receipt Date: 20110907
  Transmission Date: 20111222
  Serious: Yes (Hospitalization, Disabling)
  Sender: FDA-Public Use
  Company Number: DE-SANOFI-AVENTIS-2011SA058183

PATIENT
  Age: 62 Year
  Sex: Male
  Weight: 63 kg

DRUGS (5)
  1. THERAPEUTIC RADIOPHARMACEUTICALS [Suspect]
     Indication: RECTAL CANCER
     Dosage: 1.8 GY PER FRACTION
     Dates: start: 20110411, end: 20110513
  2. OXALIPLATIN [Suspect]
     Indication: RECTAL CANCER
     Route: 041
     Dates: start: 20110411, end: 20110411
  3. XELODA [Suspect]
     Indication: RECTAL CANCER
     Route: 048
     Dates: start: 20110411
  4. XELODA [Suspect]
     Route: 048
     Dates: start: 20110502
  5. OXALIPLATIN [Suspect]
     Route: 041
     Dates: start: 20110502, end: 20110502

REACTIONS (2)
  - FAILURE TO ANASTOMOSE [None]
  - GASTROINTESTINAL STOMA COMPLICATION [None]
